FAERS Safety Report 23897349 (Version 2)
Quarter: 2024Q3

REPORT INFORMATION
  Report Type: Spontaneous
  Country: US (occurrence: US)
  Receive Date: 20240524
  Receipt Date: 20240819
  Transmission Date: 20241017
  Serious: No
  Sender: PFIZER
  Company Number: US-PFIZER INC-202400174933

PATIENT
  Age: 60 Year
  Sex: Female

DRUGS (1)
  1. IBRANCE [Suspect]
     Active Substance: PALBOCICLIB
     Dosage: TAKE 1 TABLET DAILY FOR 21 DAYS FOLLOWED BY 7 DAYS OFF
     Dates: start: 20240429

REACTIONS (8)
  - Fatigue [Not Recovered/Not Resolved]
  - Full blood count abnormal [Not Recovered/Not Resolved]
  - Musculoskeletal chest pain [Not Recovered/Not Resolved]
  - Dyspnoea exertional [Not Recovered/Not Resolved]
  - Dyspnoea [Not Recovered/Not Resolved]
  - Lung disorder [Unknown]
  - Cough [Unknown]
  - Neutrophil count decreased [Unknown]

NARRATIVE: CASE EVENT DATE: 20240101
